FAERS Safety Report 10160493 (Version 1)
Quarter: 2014Q2

REPORT INFORMATION
  Report Type: Spontaneous
  Country: KR (occurrence: KR)
  Receive Date: 20140508
  Receipt Date: 20140508
  Transmission Date: 20141212
  Serious: Yes (Hospitalization, Other)
  Sender: FDA-Public Use
  Company Number: KR-ACTAVIS-2014-09333

PATIENT
  Age: 69 Year
  Sex: Female

DRUGS (1)
  1. DICLOFENAC SODIUM (UNKNOWN) [Suspect]
     Indication: PAIN
     Dosage: 1 DF, BID
     Route: 030

REACTIONS (1)
  - Ileal perforation [Recovered/Resolved]
